FAERS Safety Report 8269197-X (Version None)
Quarter: 2012Q2

REPORT INFORMATION
  Report Type: 
  Country: None (occurrence: None)
  Receive Date: 20120409
  Receipt Date: 20120402
  Transmission Date: 20120825
  Serious: Yes (Other)
  Sender: FDA-Public Use
  Company Number: PHHY2012US005041

PATIENT
  Age: 82 Year
  Sex: Female

DRUGS (2)
  1. BUFFERIN [Suspect]
     Indication: ARTHRITIS
     Dosage: 1 DF, QD
     Route: 048
  2. BRIMONIDINE TARTRATE [Concomitant]

REACTIONS (6)
  - DIPLOPIA [None]
  - NIGHTMARE [None]
  - HALLUCINATION [None]
  - FEELING ABNORMAL [None]
  - INCORRECT DRUG ADMINISTRATION DURATION [None]
  - GLAUCOMA [None]
